FAERS Safety Report 5777578-9 (Version None)
Quarter: 2008Q2

REPORT INFORMATION
  Report Type: 
  Country: None (occurrence: None)
  Receive Date: 20080601
  Receipt Date: 20080326
  Transmission Date: 20081010
  Serious: No
  Sender: FDA-Public Use
  Company Number: US200801003539

PATIENT
  Age: 59 Year
  Sex: Female
  Weight: 167.8 kg

DRUGS (8)
  1. BYETTA [Suspect]
     Indication: TYPE 2 DIABETES MELLITUS
     Dosage: 5 UG, 2/D, SUBCUTANEOUS; 10 UG, 2/D, SUBCUTANEOUS
     Route: 058
     Dates: start: 20070201, end: 20070501
  2. BYETTA [Suspect]
     Indication: TYPE 2 DIABETES MELLITUS
     Dosage: 5 UG, 2/D, SUBCUTANEOUS; 10 UG, 2/D, SUBCUTANEOUS
     Route: 058
     Dates: start: 20070501
  3. METFORMIN HCL [Concomitant]
  4. GLIPIZIDE [Concomitant]
  5. LODINE [Concomitant]
  6. LISINOPRIL /USA/(LISINOPRIL) [Concomitant]
  7. MULTIVITAMIN [Concomitant]
  8. FISH OIL (FISH OIL) [Concomitant]

REACTIONS (9)
  - ARTHRITIS [None]
  - BLADDER DISCOMFORT [None]
  - BLOOD GLUCOSE INCREASED [None]
  - DYSGEUSIA [None]
  - INJECTION SITE INJURY [None]
  - INJECTION SITE PAIN [None]
  - POLLAKIURIA [None]
  - URETHRAL PAIN [None]
  - URINARY TRACT INFECTION [None]
